FAERS Safety Report 4719276-6 (Version None)
Quarter: 2005Q3

REPORT INFORMATION
  Report Type: 
  Country: None (occurrence: None)
  Receive Date: 20050721
  Receipt Date: 20050502
  Transmission Date: 20060218
  Serious: No
  Sender: FDA-Public Use
  Company Number: US-BRISTOL-MYERS SQUIBB COMPANY-12955464

PATIENT
  Age: 92 Year
  Sex: Female

DRUGS (2)
  1. MAXIPIME [Suspect]
     Route: 042
     Dates: end: 20050430
  2. CLINDAMYCIN [Suspect]
     Route: 042
     Dates: end: 20050430

REACTIONS (1)
  - CONFUSIONAL STATE [None]
